FAERS Safety Report 4707174-3 (Version None)
Quarter: 2005Q3

REPORT INFORMATION
  Report Type: 
  Country: None (occurrence: None)
  Receive Date: 20050706
  Receipt Date: 20050623
  Transmission Date: 20060218
  Serious: Yes (Hospitalization)
  Sender: FDA-Public Use
  Company Number: BE-JNJFOC-20041102031

PATIENT
  Age: 20 Year
  Sex: Female

DRUGS (13)
  1. INFLIXIMAB [Suspect]
     Route: 042
  2. INFLIXIMAB [Suspect]
     Route: 042
  3. INFLIXIMAB [Suspect]
     Route: 042
  4. INFLIXIMAB [Suspect]
     Route: 042
  5. INFLIXIMAB [Suspect]
     Route: 042
  6. INFLIXIMAB [Suspect]
     Route: 042
  7. INFLIXIMAB [Suspect]
     Route: 042
  8. INFLIXIMAB [Suspect]
     Route: 042
  9. INFLIXIMAB [Suspect]
     Route: 042
  10. INFLIXIMAB [Suspect]
     Indication: CROHN'S DISEASE
     Route: 042
  11. FOLIC ACID [Concomitant]
     Indication: CROHN'S DISEASE
     Route: 049
  12. EMTHEXATE [Concomitant]
     Indication: CROHN'S DISEASE
  13. ORTHO EVRA [Concomitant]
     Indication: CONTRACEPTION

REACTIONS (2)
  - DEPRESSION [None]
  - SUICIDAL IDEATION [None]
